FAERS Safety Report 6424814-1 (Version None)
Quarter: 2009Q4

REPORT INFORMATION
  Report Type: 
  Country: None (occurrence: None)
  Receive Date: 20091103
  Receipt Date: 20091022
  Transmission Date: 20100525
  Serious: Yes (Other)
  Sender: FDA-Public Use
  Company Number: PHHY2009ES46835

PATIENT

DRUGS (6)
  1. SYNTOCINON [Suspect]
     Indication: CAESAREAN SECTION
     Dosage: I DF
     Route: 042
     Dates: start: 20090714, end: 20090714
  2. ADOLONTA [Suspect]
     Dosage: 300 MG, UNK
     Route: 042
     Dates: start: 20090714, end: 20090715
  3. ENANTYUM [Suspect]
     Indication: ANALGESIC THERAPY
     Dosage: 150 MG, UNK
     Route: 042
     Dates: start: 20090714, end: 20090715
  4. PROTHROMBIN COMPLEX [Suspect]
  5. PERFALGAN [Suspect]
     Indication: ANALGESIC THERAPY
     Dosage: 3 G
     Route: 042
     Dates: start: 20090714, end: 20090715
  6. ZOFRAN [Suspect]
     Dosage: 12 MG, UNK
     Route: 042
     Dates: start: 20090714, end: 20090715

REACTIONS (3)
  - POLYURIA [None]
  - PROTEINURIA [None]
  - RENAL FAILURE [None]
